FAERS Safety Report 6704664-9 (Version None)
Quarter: 2010Q2

REPORT INFORMATION
  Report Type: 
  Country: None (occurrence: None)
  Receive Date: 20100430
  Receipt Date: 20100315
  Transmission Date: 20101027
  Serious: Yes (Other)
  Sender: FDA-Public Use
  Company Number: US-BAYER-201013236BCC

PATIENT
  Age: 60 Year
  Sex: Female
  Weight: 102 kg

DRUGS (24)
  1. ORGINIAL ALKA SELTZER TABLETS [Suspect]
     Indication: NAUSEA
     Route: 048
     Dates: start: 20050101
  2. PEPTO BISMOL [Concomitant]
  3. BYETTA [Concomitant]
  4. GLIMEPIRIDE [Concomitant]
  5. TRICOR [Concomitant]
  6. SIMVASTATIN [Concomitant]
  7. FISH OIL [Concomitant]
  8. AMLODIPINE [Concomitant]
  9. TRIAMTERENE [Concomitant]
  10. TRAMADOL HCL [Concomitant]
  11. PREVACID [Concomitant]
  12. REQUIP [Concomitant]
  13. WELLBUTRIN [Concomitant]
  14. LAMICTAL [Concomitant]
  15. PROVIGIL [Concomitant]
  16. CLONAZEPAM [Concomitant]
  17. GABATENTIN [Concomitant]
  18. FLUTICASONE PROPIONATE [Concomitant]
  19. GENTEAL [Concomitant]
  20. ROLAIDS [Concomitant]
  21. WALGREENS' CALCIUM HIGH POTENCY [Concomitant]
  22. VITAMIN D [Concomitant]
  23. WALGREEN'S ASPIRIN [Concomitant]
  24. TRAZODONE HCL [Concomitant]

REACTIONS (5)
  - CONTUSION [None]
  - DRUG DEPENDENCE [None]
  - EAR PAIN [None]
  - ERUCTATION [None]
  - PERIPHERAL COLDNESS [None]
